FAERS Safety Report 10653303 (Version 1)
Quarter: 2014Q4

REPORT INFORMATION
  Report Type: Spontaneous
  Country: DE (occurrence: DE)
  Receive Date: 20141215
  Receipt Date: 20141215
  Transmission Date: 20150529
  Serious: Yes (Other)
  Sender: FDA-Public Use
  Company Number: DE-SA-2014SA170857

PATIENT
  Sex: Female

DRUGS (2)
  1. LEMTRADA [Suspect]
     Active Substance: ALEMTUZUMAB
     Route: 065
     Dates: start: 2013, end: 2013
  2. LEMTRADA [Suspect]
     Active Substance: ALEMTUZUMAB
     Route: 065
     Dates: start: 201410, end: 201410

REACTIONS (2)
  - Neutropenia [Unknown]
  - Leukopenia [Unknown]

NARRATIVE: CASE EVENT DATE: 2013
